FAERS Safety Report 4393039-6 (Version None)
Quarter: 2004Q3

REPORT INFORMATION
  Report Type: 
  Country: None (occurrence: None)
  Receive Date: 20040708
  Receipt Date: 20040628
  Transmission Date: 20050211
  Serious: Yes (Other)
  Sender: FDA-Public Use
  Company Number: PHFR2004GB02650

PATIENT
  Sex: 0

DRUGS (2)
  1. CARBAMAZEPINE [Suspect]
     Route: 065
  2. ROPINIROLE [Suspect]
     Route: 065

REACTIONS (5)
  - AORTIC VALVE DISEASE [None]
  - CARDIAC FAILURE CONGESTIVE [None]
  - MITRAL VALVE INCOMPETENCE [None]
  - MITRAL VALVE PROLAPSE [None]
  - TRICUSPID VALVE INCOMPETENCE [None]
